FAERS Safety Report 12840554 (Version 2)
Quarter: 2016Q4

REPORT INFORMATION
  Report Type: Spontaneous
  Country: US (occurrence: US)
  Receive Date: 20161012
  Receipt Date: 20161109
  Transmission Date: 20170207
  Serious: No
  Sender: FDA-Public Use
  Company Number: US-SHIRE-US201613597

PATIENT
  Sex: Female

DRUGS (2)
  1. ADVIL [Concomitant]
     Active Substance: IBUPROFEN
     Indication: PRODUCT USED FOR UNKNOWN INDICATION
     Dosage: UNK, UNKNOWN
     Route: 065
  2. XIIDRA [Suspect]
     Active Substance: LIFITEGRAST
     Indication: PRODUCT USED FOR UNKNOWN INDICATION
     Dosage: UNK (50 MG/ML), 2X/DAY:BID
     Route: 047
     Dates: start: 201609

REACTIONS (4)
  - Therapeutic response unexpected [Unknown]
  - Eye pain [Unknown]
  - Asthenopia [Unknown]
  - Drug effect decreased [Unknown]
